FAERS Safety Report 9405657 (Version 1)
Quarter: 2013Q3

REPORT INFORMATION
  Report Type: Report from Study
  Country: UG (occurrence: UG)
  Receive Date: 20130717
  Receipt Date: 20130717
  Transmission Date: 20140515
  Serious: Yes (Other)
  Sender: FDA-Public Use
  Company Number: UG-ABBOTT-13P-165-1118795-00

PATIENT
  Age: 39 Year
  Sex: Female

DRUGS (3)
  1. ALUVIA [Suspect]
     Indication: HIV INFECTION
     Route: 048
     Dates: start: 20130109
  2. TRUVADA [Concomitant]
     Indication: HIV INFECTION
     Route: 048
     Dates: start: 20120427
  3. EFAVIRENZ [Concomitant]
     Indication: HIV INFECTION
     Route: 048
     Dates: start: 20120427, end: 20130108

REACTIONS (1)
  - Abortion induced [Unknown]
